FAERS Safety Report 24098315 (Version 1)
Quarter: 2024Q3

REPORT INFORMATION
  Report Type: Spontaneous
  Country: TW (occurrence: TW)
  Receive Date: 20240716
  Receipt Date: 20240716
  Transmission Date: 20241017
  Serious: Yes (Other)
  Sender: AMGEN
  Company Number: TW-AMGEN-TWNSP2024136968

PATIENT
  Age: 56 Year
  Sex: Female

DRUGS (3)
  1. BEVACIZUMAB [Suspect]
     Active Substance: BEVACIZUMAB
     Indication: Non-small cell lung cancer
     Dosage: UNK
     Route: 065
     Dates: start: 2022
  2. OSIMERTINIB [Concomitant]
     Active Substance: OSIMERTINIB
     Indication: Non-small cell lung cancer
     Dosage: 80 MILLIGRAM, QD
     Route: 065
  3. OSIMERTINIB [Concomitant]
     Active Substance: OSIMERTINIB
     Dosage: 160 MILLIGRAM, QD
     Route: 065
     Dates: start: 202301

REACTIONS (2)
  - Non-small cell lung cancer metastatic [Unknown]
  - Therapy non-responder [Unknown]
